FAERS Safety Report 7960299-1 (Version None)
Quarter: 2011Q4

REPORT INFORMATION
  Report Type: 
  Country: None (occurrence: None)
  Receive Date: 20111206
  Receipt Date: 20111203
  Transmission Date: 20120403
  Serious: Yes (Death, Other)
  Sender: FDA-Public Use
  Company Number: PHHY2011CN105670

PATIENT
  Age: 78 Year
  Sex: Female

DRUGS (2)
  1. DICLOFENAC SODIUM [Suspect]
  2. ZOLEDRONOC ACID [Suspect]
     Dosage: UNK
     Route: 042
     Dates: start: 20111123

REACTIONS (8)
  - LUNG INFECTION [None]
  - WHITE BLOOD CELL COUNT INCREASED [None]
  - ASTHMA [None]
  - HEART RATE IRREGULAR [None]
  - PYREXIA [None]
  - ASPHYXIA [None]
  - CARDIAC FAILURE [None]
  - HYPERHIDROSIS [None]
